FAERS Safety Report 8074774-5 (Version None)
Quarter: 2012Q1

REPORT INFORMATION
  Report Type: 
  Country: None (occurrence: None)
  Receive Date: 20120126
  Receipt Date: 20120123
  Transmission Date: 20120608
  Serious: No
  Sender: FDA-Public Use
  Company Number: US-PFIZER INC-2012020755

PATIENT
  Sex: Male
  Weight: 78.005 kg

DRUGS (6)
  1. NORTRIPTYLINE HCL [Suspect]
     Indication: PAIN
     Dosage: 150 MG, DAILY
     Dates: start: 20110401
  2. HYDROCODONE [Suspect]
     Indication: TREMOR
  3. ATIVAN [Suspect]
     Indication: TREMOR
     Dosage: UNK
     Route: 048
  4. GABAPENTIN [Suspect]
     Indication: PAIN
     Dosage: 100 MG, 3X/DAY
     Dates: start: 20110401
  5. MORPHINE SULFATE [Suspect]
     Indication: PAIN
     Dosage: UNK
     Dates: start: 20110401
  6. HYDROCODONE [Suspect]
     Indication: PAIN
     Dosage: UNK
     Dates: start: 20110401

REACTIONS (1)
  - TREMOR [None]
